FAERS Safety Report 6491730-9 (Version None)
Quarter: 2009Q4

REPORT INFORMATION
  Report Type: 
  Country: None (occurrence: None)
  Receive Date: 20091208
  Receipt Date: 20091204
  Transmission Date: 20100525
  Serious: Yes (Death, Other)
  Sender: FDA-Public Use
  Company Number: 2009SP001006

PATIENT
  Age: 46 Year
  Sex: Male

DRUGS (11)
  1. TEMODAL [Suspect]
     Indication: GLIOBLASTOMA MULTIFORME
     Dosage: 150 MG/M2;QD;PO
     Route: 048
     Dates: start: 20070904, end: 20070908
  2. TEMODAL [Suspect]
     Indication: NEOPLASM RECURRENCE
     Dosage: 150 MG/M2;QD;PO
     Route: 048
     Dates: start: 20070904, end: 20070908
  3. TEMODAL [Suspect]
     Indication: GLIOBLASTOMA MULTIFORME
     Dosage: 150 MG/M2;QD;PO
     Route: 048
     Dates: start: 20061201
  4. TEMODAL [Suspect]
     Indication: NEOPLASM RECURRENCE
     Dosage: 150 MG/M2;QD;PO
     Route: 048
     Dates: start: 20061201
  5. MAALOX [Concomitant]
  6. OMEPRAL [Concomitant]
  7. PHENOBARBITAL TAB [Concomitant]
  8. RINDERON [Concomitant]
  9. MAGLAX [Concomitant]
  10. SEPAMIT-R [Concomitant]
  11. BISOLVON [Concomitant]

REACTIONS (5)
  - ALANINE AMINOTRANSFERASE INCREASED [None]
  - GAMMA-GLUTAMYLTRANSFERASE INCREASED [None]
  - GLIOBLASTOMA MULTIFORME [None]
  - MALIGNANT NEOPLASM PROGRESSION [None]
  - NEOPLASM RECURRENCE [None]
